FAERS Safety Report 4516335-8 (Version None)
Quarter: 2004Q4

REPORT INFORMATION
  Report Type: 
  Country: None (occurrence: None)
  Receive Date: 20041202
  Receipt Date: 20040702
  Transmission Date: 20050328
  Serious: No
  Sender: FDA-Public Use
  Company Number: US-GLAXOSMITHKLINE-A0516913A

PATIENT
  Age: 3 Year
  Sex: Male

DRUGS (6)
  1. AUGMENTIN '125' [Suspect]
     Indication: SINUSITIS
     Dosage: 500MG TWICE PER DAY
     Route: 048
     Dates: start: 20040702
  2. PREVACID [Concomitant]
  3. SINGULAIR [Concomitant]
  4. LAMICTAL [Concomitant]
  5. DEPAKOTE [Concomitant]
  6. KEPPRA [Concomitant]

REACTIONS (1)
  - URINE KETONE BODY PRESENT [None]
